FAERS Safety Report 8552917-4 (Version None)
Quarter: 2012Q3

REPORT INFORMATION
  Report Type: 
  Country: None (occurrence: None)
  Receive Date: 20120731
  Receipt Date: 20120720
  Transmission Date: 20120928
  Serious: Yes (Hospitalization)
  Sender: FDA-Public Use
  Company Number: US-BAYER-2012-073704

PATIENT
  Age: 20 Year
  Sex: Female
  Weight: 70.748 kg

DRUGS (17)
  1. MORPHINE [Concomitant]
     Indication: TONSILLECTOMY
     Dosage: 2 MG, UNK
     Route: 042
     Dates: start: 20090717
  2. GUAIFENESIN AND PSEUDOEPHEDRINE HYDROCHLORIDE [Concomitant]
     Indication: SINUSITIS
     Dosage: 120/600 BID (INTERPRETED AS TWO TIMES DAILY)
     Route: 048
     Dates: start: 20090502
  3. SENNA PLUS [Concomitant]
  4. TYLENOL (CAPLET) [Concomitant]
     Dosage: UNK
     Route: 048
     Dates: start: 20090607
  5. TYLENOL W/ CODEINE NO. 3 [Concomitant]
     Dosage: 1 TO 2 Q 4 H P.R.N.
     Route: 048
     Dates: start: 20090502
  6. ULTRAM [Concomitant]
     Indication: CYSTITIS INTERSTITIAL
     Dosage: 50 MG, PRN
     Route: 048
     Dates: start: 20090502
  7. AMOXICILLIN [Concomitant]
     Dosage: 25 MG, TID
     Route: 048
     Dates: start: 20090606
  8. PHENERGAN HCL [Concomitant]
     Indication: NAUSEA
     Dosage: 25 MG, ONE EVERY 6 HOURS PRN
     Route: 048
     Dates: start: 20090718
  9. DOXYCYCLINE HYCLATE [Concomitant]
     Indication: SINUSITIS
     Dosage: 100 MG, BID
     Route: 048
     Dates: start: 20090502
  10. ZANTAC [Concomitant]
  11. YAZ [Suspect]
  12. IBUPROFEN [Concomitant]
     Dosage: 600 MG, Q 6 H PRN
     Route: 048
     Dates: start: 20090502
  13. MORPHINE [Concomitant]
     Dosage: 4 MG, UNK
  14. PHENERGAN HCL [Concomitant]
     Dosage: 25 MG, UNK
     Route: 042
     Dates: start: 20090717
  15. ZOFRAN [Concomitant]
     Indication: NAUSEA
     Dosage: 4 MG, ONE EVERY 8 HOURS PRN
     Route: 048
     Dates: start: 20090718
  16. PERCOCET [Concomitant]
     Dosage: UNK
     Route: 048
     Dates: start: 20090726
  17. OXYCODONE HCL [Concomitant]
     Indication: PAIN
     Dosage: 5 MG, 1 OR 2 Q3HR P.R.N.
     Route: 048
     Dates: start: 20090717

REACTIONS (2)
  - DEEP VEIN THROMBOSIS [None]
  - VENA CAVA THROMBOSIS [None]
